FAERS Safety Report 7361043-1 (Version None)
Quarter: 2011Q1

REPORT INFORMATION
  Report Type: 
  Country: None (occurrence: None)
  Receive Date: 20110318
  Receipt Date: 20110311
  Transmission Date: 20110831
  Serious: Yes (Hospitalization, Other)
  Sender: FDA-Public Use
  Company Number: US-ROCHE-762802

PATIENT
  Sex: Male

DRUGS (2)
  1. AVASTIN [Suspect]
     Route: 065
     Dates: start: 20100930
  2. FOLFOX REGIMEN [Suspect]
     Route: 065
     Dates: start: 20100930

REACTIONS (6)
  - INTESTINAL INFARCTION [None]
  - MICROCYTIC ANAEMIA [None]
  - CAECITIS [None]
  - PNEUMATOSIS INTESTINALIS [None]
  - NECROTISING COLITIS [None]
  - NEUTROPENIC COLITIS [None]
